FAERS Safety Report 5072451-6 (Version None)
Quarter: 2006Q3

REPORT INFORMATION
  Report Type: 
  Country: None (occurrence: None)
  Receive Date: 20060710
  Receipt Date: 20050830
  Transmission Date: 20061208
  Serious: Yes (Other)
  Sender: FDA-Public Use
  Company Number: 2005US001259

PATIENT
  Sex: Female

DRUGS (2)
  1. ADENOSCAN [Suspect]
     Indication: SCAN MYOCARDIAL PERFUSION
     Dosage: SEE IMAGE
     Route: 042
     Dates: start: 20050830, end: 20050830
  2. MYOVIEW (ZINC CHLORIDE, TETROFOSMIN) [Concomitant]

REACTIONS (1)
  - HYPOTENSION [None]
